FAERS Safety Report 12461969 (Version 1)
Quarter: 2016Q2

REPORT INFORMATION
  Report Type: Spontaneous
  Country: US (occurrence: US)
  Receive Date: 20160613
  Receipt Date: 20160613
  Transmission Date: 20160815
  Serious: Yes (Hospitalization, Disabling, Other)
  Sender: FDA-Public Use
  Company Number: US-TEVA-226639USA

PATIENT
  Sex: Female

DRUGS (3)
  1. METOCLOPRAMIDE. [Suspect]
     Active Substance: METOCLOPRAMIDE
     Indication: IMPAIRED GASTRIC EMPTYING
     Route: 065
  2. REGLAN [Suspect]
     Active Substance: METOCLOPRAMIDE HYDROCHLORIDE
     Indication: IMPAIRED GASTRIC EMPTYING
     Route: 065
  3. METOCLOPRAMIDE. [Suspect]
     Active Substance: METOCLOPRAMIDE
     Indication: IMPAIRED GASTRIC EMPTYING

REACTIONS (20)
  - Muscle disorder [Unknown]
  - Nervous system disorder [Unknown]
  - Restless legs syndrome [Unknown]
  - Mouth ulceration [Unknown]
  - Deformity [Unknown]
  - Speech disorder [Unknown]
  - Respiratory dyskinesia [Unknown]
  - Paraesthesia [Unknown]
  - Dyskinesia [Unknown]
  - Extrapyramidal disorder [Unknown]
  - Oromandibular dystonia [Unknown]
  - Dyspnoea [Unknown]
  - Mastication disorder [Unknown]
  - Muscle spasms [Unknown]
  - Mental disorder [Unknown]
  - Tardive dyskinesia [Unknown]
  - Drug ineffective [Unknown]
  - Tremor [Unknown]
  - Hypoaesthesia [Unknown]
  - Dysphagia [Unknown]
